FAERS Safety Report 18370924 (Version 1)
Quarter: 2020Q4

REPORT INFORMATION
  Report Type: Other
  Country: FR (occurrence: FR)
  Receive Date: 20201012
  Receipt Date: 20201012
  Transmission Date: 20210114
  Serious: Yes (Hospitalization, Other)
  Sender: FDA-Public Use
  Company Number: FR-EMCURE PHARMACEUTICALS LTD-2020-EPL-001548

PATIENT
  Age: 72 Year
  Sex: Male
  Weight: 71 kg

DRUGS (16)
  1. CYTARABINE. [Suspect]
     Active Substance: CYTARABINE
     Indication: B-CELL LYMPHOMA
     Dosage: 780 MILLIGRAM, 1 DOSE PER 1 D (390 MG, BID)
     Route: 042
     Dates: start: 20191010, end: 20191014
  2. RITUXIMAB. [Suspect]
     Active Substance: RITUXIMAB
     Indication: B-CELL LYMPHOMA
     Dosage: 710 MILLIGRAM, 1 DOSE PER 2W (Q3W(740 MG, 1 DOSE 3 WEEKS))
     Route: 042
     Dates: start: 20190802, end: 20190917
  3. ZELITREX [Concomitant]
     Active Substance: VALACYCLOVIR HYDROCHLORIDE
     Indication: INFECTION PROPHYLAXIS
     Dosage: 2000 MILLIGRAM, 1 DOSE PER 1 D (1000 MILLIGRAM, BID)
     Route: 048
     Dates: start: 20190801
  4. CARMUSTINE. [Suspect]
     Active Substance: CARMUSTINE
     Indication: B-CELL LYMPHOMA
     Dosage: 580 MILLIGRAM, 1 DOSE PER 1 D, (SINGLE)
     Route: 042
     Dates: start: 20191010, end: 20191010
  5. BISOPROLOL [Concomitant]
     Active Substance: BISOPROLOL
     Indication: HYPERTENSION
     Dosage: 10 MILLIGRAM, 1 DOSE PER 1 D, (10 MILLIGRAM, QD)
     Route: 048
  6. DEXAMETHASONE. [Suspect]
     Active Substance: DEXAMETHASONE
     Indication: B-CELL LYMPHOMA
     Dosage: 160 MILLIGRAM, 1 DOSE PER 1 D, (40 MG, 4 DOSE DAILY PER 21-DAY CYCLE)
     Route: 048
     Dates: start: 20190802, end: 20190920
  7. ZARZIO [Concomitant]
     Active Substance: FILGRASTIM
     Dosage: 480 MICROGRAM, 1 DOSE PER 1W, (480 MICROGRAM, QW)
     Route: 058
     Dates: start: 20200311, end: 20200412
  8. CISPLATIN. [Suspect]
     Active Substance: CISPLATIN
     Indication: B-CELL LYMPHOMA
     Dosage: 190 MILLIGRAM, 1 DOSE PER 2W, (190 MG, 1 DOSE 3 WEEKS)
     Route: 042
     Dates: start: 20190802, end: 20190917
  9. BACTRIM [Concomitant]
     Active Substance: SULFAMETHOXAZOLE\TRIMETHOPRIM
     Indication: INFECTION PROPHYLAXIS
     Dosage: 3 IN 1 WK
     Route: 048
     Dates: start: 202001
  10. LANSOPRAZOLE. [Concomitant]
     Active Substance: LANSOPRAZOLE
     Indication: GASTROOESOPHAGEAL REFLUX DISEASE
     Dosage: 30 MILLIGRAM, 1 DOSE PER 1 D, (30 MILLIGRAM, QD)
     Route: 048
     Dates: start: 20190928
  11. SPECIAFOLDINE [Concomitant]
     Active Substance: FOLIC ACID
     Indication: FOLATE DEFICIENCY
     Dosage: 15 MILLIGRAM, 1 DOSE PER 1W (5 MILLIGRAM, 3XW)
     Route: 048
     Dates: start: 20190802
  12. CYTARABINE. [Suspect]
     Active Substance: CYTARABINE
     Dosage: 7800 MILLIGRAM, 1 DOSE PER 1 D, (3900 MG, 2 DOSE DAILY PER 21-DAY CYCLE)
     Route: 042
     Dates: start: 20190802, end: 20190918
  13. AVODART [Concomitant]
     Active Substance: DUTASTERIDE
     Indication: BENIGN PROSTATIC HYPERPLASIA
     Dosage: 0.5 MILLIGRAM, 1 DOSE PER 1 D, (0.5 MILLIGRAM, QD)
     Route: 048
  14. ETOPOSIDE. [Suspect]
     Active Substance: ETOPOSIDE
     Indication: B-CELL LYMPHOMA
     Dosage: 380 MILLIGRAM, 1 DOSE PER 1 D, (190 MG, 2 DOSE DAILY)
     Route: 042
     Dates: start: 20191010, end: 20191014
  15. MELPHALAN. [Suspect]
     Active Substance: MELPHALAN
     Indication: B-CELL LYMPHOMA
     Dosage: 270 MILLIGRAM, 1 DOSE PER 1 D (SINGLE)
     Route: 042
     Dates: start: 20191014, end: 20191014
  16. ZARZIO [Concomitant]
     Active Substance: FILGRASTIM
     Indication: NEUTROPENIA
     Dosage: 1440 MICROGRAM, 1 DOSE PER 1W, (480 MICROGRAM, 3XW)
     Route: 065
     Dates: start: 20200414

REACTIONS (2)
  - Bronchopulmonary aspergillosis [Recovered/Resolved]
  - Off label use [Unknown]

NARRATIVE: CASE EVENT DATE: 20200407
